FAERS Safety Report 16859708 (Version 1)
Quarter: 2019Q3

REPORT INFORMATION
  Report Type: Spontaneous
  Country: US (occurrence: US)
  Receive Date: 20190927
  Receipt Date: 20190927
  Transmission Date: 20191005
  Serious: Yes (Other)
  Sender: FDA-Public Use
  Company Number: US-NOVOPROD-686370

PATIENT
  Sex: Female

DRUGS (1)
  1. TRESIBA [Suspect]
     Active Substance: INSULIN DEGLUDEC
     Indication: TYPE 2 DIABETES MELLITUS
     Dosage: 100 IU, QD
     Route: 058
     Dates: start: 2013

REACTIONS (5)
  - Post procedural sepsis [Unknown]
  - Hernia [Unknown]
  - Road traffic accident [Unknown]
  - Apparent death [Unknown]
  - Intra-abdominal fluid collection [Unknown]
